FAERS Safety Report 12613515 (Version 1)
Quarter: 2016Q3

REPORT INFORMATION
  Report Type: Other
  Country: IN (occurrence: IN)
  Receive Date: 20160802
  Receipt Date: 20160802
  Transmission Date: 20161109
  Serious: Yes (Death, Hospitalization)
  Sender: FDA-Public Use
  Company Number: IN-LUPIN PHARMACEUTICALS INC.-2016-03352

PATIENT
  Sex: Male

DRUGS (3)
  1. ERLOTINIB [Suspect]
     Active Substance: ERLOTINIB
     Indication: CHEMOTHERAPY
     Route: 048
  2. METHOTREXATE. [Suspect]
     Active Substance: METHOTREXATE
     Indication: CHEMOTHERAPY
     Route: 048
  3. CELECOXIB. [Suspect]
     Active Substance: CELECOXIB
     Indication: CHEMOTHERAPY
     Route: 048

REACTIONS (2)
  - Respiratory failure [Fatal]
  - Pneumonia aspiration [Unknown]
